FAERS Safety Report 6852895-X (Version None)
Quarter: 2010Q3

REPORT INFORMATION
  Report Type: 
  Country: None (occurrence: None)
  Receive Date: 20100717
  Receipt Date: 20071126
  Transmission Date: 20110219
  Serious: No
  Sender: FDA-Public Use
  Company Number: US-PFIZER INC-2007101096

PATIENT
  Sex: Male
  Weight: 67.3 kg

DRUGS (3)
  1. CHANTIX [Suspect]
     Indication: SMOKING CESSATION THERAPY
     Dates: start: 20071119
  2. CHOLESTEROL- AND TRIGLYCERIDE REDUCERS [Concomitant]
  3. DRUG, UNSPECIFIED [Concomitant]
     Indication: GASTROOESOPHAGEAL REFLUX DISEASE

REACTIONS (2)
  - NIGHTMARE [None]
  - TERMINAL INSOMNIA [None]
